FAERS Safety Report 5238011-9 (Version None)
Quarter: 2007Q1

REPORT INFORMATION
  Report Type: 
  Country: None (occurrence: None)
  Receive Date: 20070214
  Receipt Date: 20070207
  Transmission Date: 20070707
  Serious: Yes (Other)
  Sender: FDA-Public Use
  Company Number: US-PFIZER INC-2007004987

PATIENT
  Sex: Female
  Weight: 59 kg

DRUGS (5)
  1. LYRICA [Suspect]
     Indication: MIGRAINE PROPHYLAXIS
     Route: 048
  2. EFFEXOR XR [Concomitant]
  3. ZYRTEC [Concomitant]
  4. NASONEX [Concomitant]
  5. ALLERGY MEDICATION [Concomitant]

REACTIONS (6)
  - ABDOMINAL PAIN UPPER [None]
  - ADRENAL DISORDER [None]
  - BLOOD CORTISOL ABNORMAL [None]
  - DIARRHOEA [None]
  - FLATULENCE [None]
  - WEIGHT INCREASED [None]
